FAERS Safety Report 13111251 (Version 3)
Quarter: 2017Q3

REPORT INFORMATION
  Report Type: Spontaneous
  Country: HU (occurrence: HU)
  Receive Date: 20170112
  Receipt Date: 20170918
  Transmission Date: 20171127
  Serious: Yes (Hospitalization, Other)
  Sender: FDA-Public Use
  Company Number: HU-PFIZER INC-2017013130

PATIENT
  Age: 70 Year
  Sex: Male

DRUGS (4)
  1. SYNCUMAR [Concomitant]
     Active Substance: ACENOCOUMAROL
     Dosage: 1X1
     Dates: end: 201701
  2. CONCOR [Concomitant]
     Active Substance: BISOPROLOL FUMARATE
     Dosage: 1X1
     Dates: end: 201701
  3. COVERCARD [Concomitant]
     Active Substance: AMLODIPINE BESYLATE\PERINDOPRIL ARGININE
     Dosage: 2X1
     Dates: end: 201701
  4. SUTENT [Suspect]
     Active Substance: SUNITINIB MALATE
     Indication: RENAL CELL CARCINOMA
     Dosage: 50 MG, CYCLIC (DAILY 1X, ACCORDING TO 2/1 SCHEMA)
     Route: 048
     Dates: start: 20160912

REACTIONS (4)
  - Neoplasm progression [Unknown]
  - Kidney contusion [Unknown]
  - Syncope [Recovered/Resolved]
  - Haematuria [Recovered/Resolved]

NARRATIVE: CASE EVENT DATE: 20170107
